FAERS Safety Report 4566881-6 (Version None)
Quarter: 2005Q1

REPORT INFORMATION
  Report Type: 
  Country: None (occurrence: None)
  Receive Date: 20050201
  Receipt Date: 20021016
  Transmission Date: 20050727
  Serious: Yes (Other)
  Sender: FDA-Public Use
  Company Number: US-BRISTOL-MYERS SQUIBB COMPANY-12078978

PATIENT
  Age: 37 Year
  Sex: Female

DRUGS (1)
  1. STADOL [Suspect]
     Route: 045
     Dates: start: 19940901, end: 19960101

REACTIONS (6)
  - ASTHENIA [None]
  - CHEST PAIN [None]
  - DEPENDENCE [None]
  - DIZZINESS [None]
  - DYSPNOEA [None]
  - SYNCOPE [None]
